FAERS Safety Report 18636081 (Version 1)
Quarter: 2020Q4

REPORT INFORMATION
  Report Type: Spontaneous
  Country: US (occurrence: US)
  Receive Date: 20201218
  Receipt Date: 20201218
  Transmission Date: 20210114
  Serious: No
  Sender: FDA-Public Use
  Company Number: US-ELI_LILLY_AND_COMPANY-US202012002322

PATIENT
  Sex: Male

DRUGS (3)
  1. TRULICITY [Suspect]
     Active Substance: DULAGLUTIDE
     Indication: DIABETES MELLITUS
     Dosage: 0.75 MG, WEEKLY (1/W)
     Route: 058
     Dates: start: 202004
  2. METFORMIN [Concomitant]
     Active Substance: METFORMIN HYDROCHLORIDE
     Indication: GLYCOSYLATED HAEMOGLOBIN
     Dosage: 2 DOSAGE FORM, BID(500 MG)
  3. GLIPIZIDE. [Concomitant]
     Active Substance: GLIPIZIDE
     Indication: GLYCOSYLATED HAEMOGLOBIN
     Dosage: 10 MG, DAILY

REACTIONS (1)
  - Glycosylated haemoglobin increased [Unknown]
